FAERS Safety Report 13620478 (Version 1)
Quarter: 2017Q2

REPORT INFORMATION
  Report Type: Spontaneous
  Country: US (occurrence: US)
  Receive Date: 20170607
  Receipt Date: 20170607
  Transmission Date: 20170830
  Serious: No
  Sender: FDA-Public Use
  Company Number: None

PATIENT

DRUGS (2)
  1. CEFAZOLIN/DEXT 2 GM PREMIXED IV BAGS [Suspect]
     Active Substance: CEFAZOLIN\DEXTROSE
     Indication: PROPHYLAXIS
     Route: 042
     Dates: start: 20170512
  2. CEFAZOLIN/DEXT 2 GM PREMIXED IV BAGS [Suspect]
     Active Substance: CEFAZOLIN\DEXTROSE
     Indication: PREOPERATIVE CARE
     Route: 042
     Dates: start: 20170512

REACTIONS (2)
  - Product quality issue [None]
  - Urticaria [None]

NARRATIVE: CASE EVENT DATE: 20170517
